FAERS Safety Report 6860224-0 (Version None)
Quarter: 2010Q3

REPORT INFORMATION
  Report Type: 
  Country: None (occurrence: None)
  Receive Date: 20100720
  Receipt Date: 20100706
  Transmission Date: 20110219
  Serious: Yes (Other)
  Sender: FDA-Public Use
  Company Number: PHHY2010US44373

PATIENT
  Sex: Female

DRUGS (1)
  1. GENTEAL (NVO) [Suspect]
     Dosage: UNK, UNK
     Route: 047

REACTIONS (3)
  - CORNEAL ABRASION [None]
  - EYE IRRITATION [None]
  - FOREIGN BODY SENSATION IN EYES [None]
